FAERS Safety Report 7939779-0 (Version None)
Quarter: 2011Q4

REPORT INFORMATION
  Report Type: 
  Country: None (occurrence: None)
  Receive Date: 20111125
  Receipt Date: 20111121
  Transmission Date: 20120403
  Serious: Yes (Death, Other)
  Sender: FDA-Public Use
  Company Number: PHHY2010IE01065

PATIENT
  Sex: Female

DRUGS (11)
  1. KWELLS [Concomitant]
     Dosage: UNK UKN, UNK
  2. PREDNISOLONE [Concomitant]
     Dosage: 20 MG, QD
     Dates: start: 20091216, end: 20091221
  3. ERYTHROMYCIN [Concomitant]
     Dosage: UNK UKN, UNK
     Dates: end: 20091230
  4. CLOZARIL [Suspect]
     Indication: SCHIZOPHRENIA
     Dosage: 650 MG, QD
     Route: 048
     Dates: start: 20060214
  5. ATENOLOL [Concomitant]
     Dosage: 25 MG, UNK
     Route: 048
  6. PANTOPRAZOLE [Concomitant]
     Dosage: 40 MG, UNK
     Route: 048
  7. FLURAZEPAM [Concomitant]
     Dosage: 15 MG, NOCTE
  8. CANESTEN-HC [Concomitant]
     Dosage: UNK UKN, UNK
     Route: 061
  9. SOLIFENACIN SUCCINATE [Concomitant]
     Dosage: 10 MG, UNK
  10. ALBUTEROL SULFATE AUTOHALER [Concomitant]
     Dosage: UNK UKN, UNK
  11. KEFLEX [Concomitant]
     Dosage: 250 MG, QID
     Dates: start: 20091208, end: 20091215

REACTIONS (4)
  - ASPIRATION [None]
  - MALAISE [None]
  - RESPIRATORY TRACT INFECTION [None]
  - ANTIPSYCHOTIC DRUG LEVEL ABOVE THERAPEUTIC [None]
